FAERS Safety Report 20520458 (Version 2)
Quarter: 2022Q1

REPORT INFORMATION
  Report Type: Spontaneous
  Country: DE (occurrence: DE)
  Receive Date: 20220225
  Receipt Date: 20220307
  Transmission Date: 20220423
  Serious: Yes (Other)
  Sender: FDA-Public Use
  Company Number: DE-ACRAF SpA-2022-026833

PATIENT

DRUGS (8)
  1. XCOPRI [Suspect]
     Active Substance: CENOBAMATE
     Indication: Epilepsy
     Dosage: 25 MILLIGRAM, QD
     Route: 048
     Dates: start: 20220127, end: 20220208
  2. XCOPRI [Suspect]
     Active Substance: CENOBAMATE
     Dosage: 50 MILLIGRAM, QD
     Route: 048
     Dates: start: 20220209, end: 20220210
  3. VALPROATE SODIUM [Concomitant]
     Active Substance: VALPROATE SODIUM
     Indication: Epilepsy
     Dosage: DECREASED ON 13-JAN-2022
     Route: 065
  4. LAMICTAL [Concomitant]
     Active Substance: LAMOTRIGINE
     Indication: Epilepsy
     Dosage: INCREASED ON 24-JAN-2022; DECREASED ON 09-FEB-2022
     Route: 065
  5. ZONEGRAN [Concomitant]
     Active Substance: ZONISAMIDE
     Indication: Epilepsy
     Dosage: INCREASED FROM 10-JAN-2022 TO 03-FEB-2022;DECREASED ON 09-FEB-2022
     Route: 065
  6. METOHEXAL                          /00376902/ [Concomitant]
     Indication: Epilepsy
     Dosage: 47.5 MILLIGRAM (2 DOSAGE FORM)
     Route: 065
  7. CALCIVIT D [Concomitant]
     Indication: Epilepsy
     Dosage: 1 IN 1 D
     Route: 065
  8. DESOFEMONO [Concomitant]
     Indication: Epilepsy
     Dosage: 1 IN 1 D
     Route: 065

REACTIONS (1)
  - Drug reaction with eosinophilia and systemic symptoms [Recovered/Resolved]

NARRATIVE: CASE EVENT DATE: 20220210
